FAERS Safety Report 7320855-0 (Version None)
Quarter: 2011Q1

REPORT INFORMATION
  Report Type: 
  Country: None (occurrence: None)
  Receive Date: 20110121
  Receipt Date: 20100609
  Transmission Date: 20110831
  Serious: Yes (Other)
  Sender: FDA-Public Use
  Company Number: SOLV00210003059

PATIENT
  Age: 55 Year
  Sex: Female

DRUGS (6)
  1. PROMETRIUM [Suspect]
     Indication: OESTROGEN REPLACEMENT THERAPY
     Dosage: 200MG DAILY FOR FIRST 12 DAYS OF THE MONTH, 200MG DAILY FIRST 12 DAYS OF THE MONTH
     Dates: start: 20060101, end: 20060101
  2. PROMETRIUM [Suspect]
     Indication: OESTROGEN REPLACEMENT THERAPY
     Dosage: 200MG DAILY FOR FIRST 12 DAYS OF THE MONTH, 200MG DAILY FIRST 12 DAYS OF THE MONTH
     Dates: start: 20060601
  3. CLIMARA [Suspect]
     Indication: OESTROGEN REPLACEMENT THERAPY
     Dosage: DAILY TRANSCUTANEOUS, DAILY TRANSCUTANEOUS
     Dates: start: 20060101, end: 20060101
  4. CLIMARA [Suspect]
     Indication: OESTROGEN REPLACEMENT THERAPY
     Dosage: DAILY TRANSCUTANEOUS, DAILY TRANSCUTANEOUS
     Dates: start: 20060601
  5. PLACEBO [Suspect]
     Indication: OESTROGEN REPLACEMENT THERAPY
     Dates: start: 20060601
  6. PLACEBO [Suspect]
     Indication: OESTROGEN REPLACEMENT THERAPY
     Dates: start: 20060101, end: 20060101

REACTIONS (1)
  - BREAST CANCER [None]
